FAERS Safety Report 13086448 (Version 3)
Quarter: 2017Q1

REPORT INFORMATION
  Report Type: Report from Study
  Country: US (occurrence: US)
  Receive Date: 20170104
  Receipt Date: 20170117
  Transmission Date: 20170428
  Serious: Yes (Hospitalization)
  Sender: FDA-Public Use
  Company Number: US-ACTELION-A-US2016-147690

PATIENT
  Age: 77 Year
  Sex: Female

DRUGS (6)
  1. UPTRAVI [Suspect]
     Active Substance: SELEXIPAG
     Dosage: 400 MCG, BID
     Route: 048
  2. ADCIRCA [Concomitant]
     Active Substance: TADALAFIL
  3. CEFUROXIME. [Concomitant]
     Active Substance: CEFUROXIME
  4. OPSUMIT [Suspect]
     Active Substance: MACITENTAN
     Indication: PULMONARY ARTERIAL HYPERTENSION
     Dosage: 10 MG, QD
     Route: 048
     Dates: start: 20160327
  5. COUMADIN [Concomitant]
     Active Substance: WARFARIN SODIUM
  6. UPTRAVI [Suspect]
     Active Substance: SELEXIPAG
     Indication: PULMONARY ARTERIAL HYPERTENSION
     Dosage: 200 MCG, BID
     Route: 048
     Dates: start: 20161215

REACTIONS (11)
  - Clostridium difficile colitis [Recovered/Resolved]
  - Diarrhoea [Recovered/Resolved]
  - Decreased appetite [Unknown]
  - Dyspnoea [Recovering/Resolving]
  - Insomnia [Unknown]
  - Gastrointestinal infection [Unknown]
  - Asthenia [Unknown]
  - Malaise [Unknown]
  - Nausea [Unknown]
  - Dizziness [Unknown]
  - Poor quality sleep [Unknown]

NARRATIVE: CASE EVENT DATE: 20161201
